FAERS Safety Report 6609409-9 (Version None)
Quarter: 2010Q1

REPORT INFORMATION
  Report Type: 
  Country: None (occurrence: None)
  Receive Date: 20100302
  Receipt Date: 20100225
  Transmission Date: 20100710
  Serious: Yes (Death)
  Sender: FDA-Public Use
  Company Number: DE-WYE-G05640310

PATIENT
  Sex: Male
  Weight: 75 kg

DRUGS (27)
  1. TYGACIL [Suspect]
     Indication: ABDOMINAL INFECTION
     Route: 042
     Dates: start: 20091101, end: 20091101
  2. TYGACIL [Suspect]
     Route: 042
     Dates: start: 20091102, end: 20091107
  3. ARTERENOL [Concomitant]
  4. DOBUTAMINE [Concomitant]
  5. DIGIMERCK [Concomitant]
  6. POTASSIUM [Concomitant]
  7. TOREM [Concomitant]
  8. DORMICUM [Concomitant]
  9. SUFENTA [Concomitant]
  10. TAVOR [Concomitant]
  11. ECALTA [Concomitant]
  12. DIFLUCAN [Concomitant]
  13. POTASSIUM CANRENOATE [Concomitant]
  14. KONAKION [Concomitant]
  15. PANTOZOL [Concomitant]
  16. NOVALGIN [Concomitant]
  17. CERNEVIT-12 [Concomitant]
  18. DULCOLAX [Concomitant]
  19. DURAGESIC-100 [Concomitant]
  20. INSULIN [Concomitant]
  21. HYDROCORTISONE [Concomitant]
  22. MERONEM [Suspect]
     Route: 042
     Dates: start: 20091019, end: 20091030
  23. VANCOMYCIN [Suspect]
     Dosage: ADJUSTED BY BLOOD LEVEL MEASUREMENTS, 500MG - 2 G PER DAY
     Route: 042
     Dates: start: 20090925, end: 20091101
  24. CIPRO [Suspect]
     Route: 042
     Dates: start: 20091030, end: 20091031
  25. METRONIDAZOLE [Suspect]
     Route: 042
     Dates: start: 20091030, end: 20091101
  26. FORTUM [Suspect]
     Route: 042
     Dates: start: 20091101, end: 20091107
  27. HEPARIN [Concomitant]

REACTIONS (17)
  - ADRENAL ADENOMA [None]
  - ADRENAL HAEMORRHAGE [None]
  - ARTERIOSCLEROSIS [None]
  - BLADDER DISORDER [None]
  - CIRCULATORY COLLAPSE [None]
  - DIVERTICULITIS [None]
  - HAEMORRHAGIC DIATHESIS [None]
  - HEPATIC FAILURE [None]
  - LIPOMA [None]
  - MITRAL VALVE DISEASE [None]
  - MULTI-ORGAN FAILURE [None]
  - PNEUMONIA [None]
  - RENAL FAILURE [None]
  - SEPSIS [None]
  - SPLEEN DISORDER [None]
  - TOXIC EPIDERMAL NECROLYSIS [None]
  - TRACHEAL ULCER [None]
